FAERS Safety Report 11685748 (Version 4)
Quarter: 2015Q4

REPORT INFORMATION
  Report Type: Spontaneous
  Country: IR (occurrence: IR)
  Receive Date: 20151030
  Receipt Date: 20151102
  Transmission Date: 20160304
  Serious: Yes (Other)
  Sender: FDA-Public Use
  Company Number: IR-ACTAVIS-2015-23060

PATIENT
  Age: 52 Year
  Sex: Male

DRUGS (7)
  1. IRINOTECAN (UNKNOWN) [Suspect]
     Active Substance: IRINOTECAN
     Indication: ADENOCARCINOMA OF COLON
     Dosage: UNK
     Route: 065
  2. XELODA [Suspect]
     Active Substance: CAPECITABINE
     Indication: ADENOCARCINOMA OF COLON
     Dosage: UNK
     Route: 065
  3. BEVACIZUMAB [Suspect]
     Active Substance: BEVACIZUMAB
     Indication: ADENOCARCINOMA OF COLON
     Dosage: EVERY 3 WEEKS FOR NEARLY 8 MONTHS
     Route: 042
  4. XELODA [Suspect]
     Active Substance: CAPECITABINE
     Dosage: UNK
     Route: 065
  5. OXALIPLATIN. [Suspect]
     Active Substance: OXALIPLATIN
     Indication: ADENOCARCINOMA OF COLON
     Dosage: 130 MG/M TWICE A DAY TO 3 CYCLES
     Route: 042
  6. CAPECITABINE (UNKNOWN) [Suspect]
     Active Substance: CAPECITABINE
     Indication: ADENOCARCINOMA OF COLON
     Dosage: 1000 MG/M TWICE DAILY TO 3 CYCLICES
     Route: 048
  7. CAPECITABINE (UNKNOWN) [Suspect]
     Active Substance: CAPECITABINE
     Dosage: 1000 MG/M EVERY 3 WEEKS FOR NEARLY 8 MONTHS
     Route: 048

REACTIONS (2)
  - Chronic myeloid leukaemia [Recovering/Resolving]
  - Diarrhoea [Unknown]
